FAERS Safety Report 5568098-5 (Version None)
Quarter: 2007Q4

REPORT INFORMATION
  Report Type: 
  Country: None (occurrence: None)
  Receive Date: 20071220
  Receipt Date: 20071126
  Transmission Date: 20080405
  Serious: No
  Sender: FDA-Public Use
  Company Number: US-BAYER-200714556BWH

PATIENT
  Age: 64 Year
  Sex: Male

DRUGS (4)
  1. LEVITRA [Suspect]
     Indication: ERECTILE DYSFUNCTION
     Dosage: AS USED: 20 MG  UNIT DOSE: 20 MG
     Route: 048
     Dates: start: 20071112, end: 20071114
  2. PRAMIPEXOLE DIHYDROCHLORIDE [Concomitant]
     Indication: RESTLESS LEGS SYNDROME
  3. MONTELUKAST SODIUM [Concomitant]
     Indication: ASTHMA
  4. FLURAZEPAM [Concomitant]
     Indication: INSOMNIA

REACTIONS (1)
  - ERECTILE DYSFUNCTION [None]
